FAERS Safety Report 6269298-1 (Version None)
Quarter: 2009Q3

REPORT INFORMATION
  Report Type: 
  Country: None (occurrence: None)
  Receive Date: 20090715
  Receipt Date: 20090713
  Transmission Date: 20100115
  Serious: Yes (Death, Other)
  Sender: FDA-Public Use
  Company Number: PHHY2009BR28815

PATIENT
  Sex: Female

DRUGS (5)
  1. EXELON [Suspect]
     Indication: DEMENTIA ALZHEIMER'S TYPE
     Dosage: 1.5 MG, BID
  2. EXELON [Suspect]
     Dosage: 6 MG, BID
  3. SEROQUEL [Concomitant]
     Indication: HALLUCINATION
     Dosage: 0.25 MG, BID
     Route: 048
  4. SEROQUEL [Concomitant]
     Dosage: 0.25 MG, QD
     Route: 048
  5. SEROQUEL [Concomitant]
     Dosage: 1/2 TABLET PER DAY
     Route: 048

REACTIONS (5)
  - ASTHENIA [None]
  - DEMENTIA ALZHEIMER'S TYPE [None]
  - GENERAL PHYSICAL HEALTH DETERIORATION [None]
  - ISCHAEMIA [None]
  - URINARY TRACT INFECTION [None]
